FAERS Safety Report 21555856 (Version 3)
Quarter: 2023Q1

REPORT INFORMATION
  Report Type: Spontaneous
  Country: JP (occurrence: JP)
  Receive Date: 20221104
  Receipt Date: 20230303
  Transmission Date: 20230418
  Serious: Yes (Death)
  Sender: FDA-Public Use
  Company Number: JP-Eisai-202210324_LEN-HCC_P_1

PATIENT
  Age: 72 Year
  Sex: Male

DRUGS (1)
  1. LENVATINIB [Suspect]
     Active Substance: LENVATINIB
     Indication: Hepatocellular carcinoma
     Route: 048
     Dates: start: 20220711, end: 20220719

REACTIONS (2)
  - COVID-19 [Fatal]
  - Pneumonia aspiration [Fatal]

NARRATIVE: CASE EVENT DATE: 20220701
